FAERS Safety Report 18553820 (Version 1)
Quarter: 2020Q4

REPORT INFORMATION
  Report Type: Report from Study
  Country: FR (occurrence: FR)
  Receive Date: 20201127
  Receipt Date: 20201127
  Transmission Date: 20210114
  Serious: Yes (Other)
  Sender: FDA-Public Use
  Company Number: FR-GLAXOSMITHKLINE-FR2020GSK233987

PATIENT
  Age: 64 Year
  Sex: Female

DRUGS (5)
  1. CLADRIBINE. [Suspect]
     Active Substance: CLADRIBINE
     Indication: HAIRY CELL LEUKAEMIA
     Dosage: UNK
  2. ATOVAQUONE. [Suspect]
     Active Substance: ATOVAQUONE
     Indication: ANTIBIOTIC THERAPY
     Dosage: UNK
  3. VALACICLOVIR [Concomitant]
     Active Substance: VALACYCLOVIR HYDROCHLORIDE
     Indication: ANTIBIOTIC THERAPY
     Dosage: UNK
  4. CEFIXIME. [Concomitant]
     Active Substance: CEFIXIME
     Indication: ANTIBIOTIC THERAPY
     Dosage: UNK
  5. CIPROFLOXACIN. [Concomitant]
     Active Substance: CIPROFLOXACIN
     Indication: ANTIBIOTIC THERAPY
     Dosage: UNK

REACTIONS (2)
  - Drug reaction with eosinophilia and systemic symptoms [Recovered/Resolved]
  - Rash [Recovered/Resolved]
